FAERS Safety Report 12607747 (Version 1)
Quarter: 2016Q3

REPORT INFORMATION
  Report Type: Spontaneous
  Country: RU (occurrence: RU)
  Receive Date: 20160729
  Receipt Date: 20160729
  Transmission Date: 20161109
  Serious: Yes (Other)
  Sender: FDA-Public Use
  Company Number: RU-ASTRAZENECA-2016SE80314

PATIENT
  Age: 55 Year
  Sex: Male
  Weight: 96 kg

DRUGS (5)
  1. CONCOR [Concomitant]
     Active Substance: BISOPROLOL FUMARATE
  2. PRESTARIUM A [Concomitant]
     Active Substance: PERINDOPRIL ARGININE
  3. INSPRA [Concomitant]
     Active Substance: EPLERENONE
  4. BRILINTA [Suspect]
     Active Substance: TICAGRELOR
     Indication: STENT PLACEMENT
     Route: 048
     Dates: start: 201510
  5. ASPIRIN CARDIO [Concomitant]
     Active Substance: ASPIRIN

REACTIONS (1)
  - Gastric neoplasm [Not Recovered/Not Resolved]

NARRATIVE: CASE EVENT DATE: 201605
